FAERS Safety Report 16866717 (Version 1)
Quarter: 2019Q4

REPORT INFORMATION
  Report Type: Spontaneous
  Country: US (occurrence: US)
  Receive Date: 20190927
  Receipt Date: 20190927
  Transmission Date: 20200122
  Serious: No
  Sender: FDA-Public Use
  Company Number: None

PATIENT
  Age: 56 Year
  Sex: Female
  Weight: 72 kg

DRUGS (5)
  1. VENLAFAXINE 100 MG [Concomitant]
  2. PHENDAMETREAZINE [Concomitant]
  3. LISINOPRIL 20 MG [Concomitant]
     Active Substance: LISINOPRIL
  4. PHENDIMETRAZINE. [Suspect]
     Active Substance: PHENDIMETRAZINE TARTRATE
     Indication: WEIGHT INCREASED
     Dosage: ?          QUANTITY:2 TABLET(S);?
     Route: 048
     Dates: start: 20190510, end: 20190524
  5. TAMOXIFEN 10 MG [Concomitant]

REACTIONS (9)
  - Headache [None]
  - Product quality issue [None]
  - Dry mouth [None]
  - Fatigue [None]
  - Hunger [None]
  - Product substitution issue [None]
  - Food craving [None]
  - Dizziness [None]
  - Feeling abnormal [None]

NARRATIVE: CASE EVENT DATE: 20190510
